FAERS Safety Report 16570697 (Version 1)
Quarter: 2019Q3

REPORT INFORMATION
  Report Type: Spontaneous
  Country: US (occurrence: US)
  Receive Date: 20190531
  Receipt Date: 20190531
  Transmission Date: 20191004
  Serious: No
  Sender: FDA-Public Use
  Company Number: None

PATIENT
  Age: 58 Year
  Sex: Male

DRUGS (9)
  1. ALLOPURINOL. [Concomitant]
     Active Substance: ALLOPURINOL
  2. PREDNODONE [Concomitant]
  3. SERTRALINE [Concomitant]
     Active Substance: SERTRALINE HYDROCHLORIDE
  4. NEUPOGEN [Suspect]
     Active Substance: FILGRASTIM
     Indication: DRUG THERAPY
     Dosage: ?          OTHER STRENGTH:48/0.8 UG/ML;?
     Route: 058
     Dates: start: 20190531
  5. ONDANSETRON [Concomitant]
     Active Substance: ONDANSETRON
  6. BUOROPN HCL [Concomitant]
  7. ZOLPIDEM [Concomitant]
     Active Substance: ZOLPIDEM TARTRATE
  8. LORAZEPAM. [Concomitant]
     Active Substance: LORAZEPAM
  9. CLONAZEPAM. [Concomitant]
     Active Substance: CLONAZEPAM

REACTIONS (1)
  - Hospitalisation [None]
